FAERS Safety Report 24035597 (Version 1)
Quarter: 2024Q2

REPORT INFORMATION
  Report Type: Spontaneous
  Country: US (occurrence: None)
  Receive Date: 20240629
  Receipt Date: 20240629
  Transmission Date: 20240716
  Serious: Yes (Disabling, Other)
  Sender: FDA-Public Use
  Company Number: None

PATIENT
  Age: 37 Year
  Sex: Male
  Weight: 65.7 kg

DRUGS (8)
  1. FINASTERIDE\MINOXIDIL [Suspect]
     Active Substance: FINASTERIDE\MINOXIDIL
     Indication: Alopecia
     Dosage: FREQUENCY : DAILY?
     Dates: start: 20211113, end: 20231018
  2. FINASTERIDE [Suspect]
     Active Substance: FINASTERIDE
  3. ZOLPIDEM [Concomitant]
     Active Substance: ZOLPIDEM TARTRATE
  4. ALPRAZOLAM [Concomitant]
     Active Substance: ALPRAZOLAM
  5. ATOMOXETINE [Concomitant]
     Active Substance: ATOMOXETINE\ATOMOXETINE HYDROCHLORIDE
  6. Pumpkin seed oil [Concomitant]
  7. MAGNESIUM [Concomitant]
     Active Substance: MAGNESIUM
  8. APIGENIN [Concomitant]
     Active Substance: APIGENIN

REACTIONS (11)
  - Libido decreased [None]
  - Testicular pain [None]
  - Suicidal ideation [None]
  - Anxiety [None]
  - Depression [None]
  - Sexual dysfunction [None]
  - Cognitive disorder [None]
  - Brain fog [None]
  - Gastrointestinal bacterial overgrowth [None]
  - Insomnia [None]
  - Emotional disorder [None]
